FAERS Safety Report 5491390-X (Version None)
Quarter: 2008Q1

REPORT INFORMATION
  Report Type: 
  Country: None (occurrence: None)
  Receive Date: 20071018
  Receipt Date: 20071008
  Transmission Date: 20080703
  Serious: Yes (Hospitalization)
  Sender: FDA-Public Use
  Company Number: GXKR2007JP08655

PATIENT
  Age: 1 Year
  Sex: Male

DRUGS (6)
  1. CEFOTAXIME SODIUM [Suspect]
     Indication: MENINGITIS BACTERIAL
  2. CEFTRIAXONE SODIUM [Suspect]
     Indication: MENINGITIS BACTERIAL
  3. AMPICILLIN [Concomitant]
  4. PIPERACILLIN SODIUM [Concomitant]
  5. PANIPENEM [Concomitant]
  6. CHLORAMPHENICOL [Concomitant]

REACTIONS (3)
  - DECREASED APPETITE [None]
  - IRRITABILITY [None]
  - MENINGITIS ASEPTIC [None]
